FAERS Safety Report 19902353 (Version 5)
Quarter: 2021Q4

REPORT INFORMATION
  Report Type: Report from Study
  Country: US (occurrence: US)
  Receive Date: 20210930
  Receipt Date: 20211206
  Transmission Date: 20220303
  Serious: Yes (Hospitalization, Other)
  Sender: FDA-Public Use
  Company Number: US-GW PHARMA-202108USGW04146

PATIENT

DRUGS (2)
  1. EPIDIOLEX [Suspect]
     Active Substance: CANNABIDIOL
     Indication: Epilepsy
     Dosage: UNK
     Route: 048
     Dates: start: 202101
  2. EPIDIOLEX [Suspect]
     Active Substance: CANNABIDIOL
     Dosage: 25.4 MG/KG (2ML MORNING AND 2.4 ML AT NIGHT)
     Route: 048
     Dates: start: 20210321

REACTIONS (6)
  - Status epilepticus [Recovered/Resolved]
  - Brain operation [Recovered/Resolved]
  - Seizure [Recovered/Resolved]
  - Weight decreased [Recovered/Resolved]
  - Decreased appetite [Recovered/Resolved]
  - Intentional product use issue [Unknown]

NARRATIVE: CASE EVENT DATE: 20210101
